FAERS Safety Report 5280492-9 (Version None)
Quarter: 2007Q1

REPORT INFORMATION
  Report Type: 
  Country: None (occurrence: None)
  Receive Date: 20061229
  Receipt Date: 20060821
  Transmission Date: 20070707
  Serious: Yes (Other)
  Sender: FDA-Public Use
  Company Number: 2006UW16584

PATIENT
  Age: 70 Year
  Sex: Female

DRUGS (5)
  1. CRESTOR [Suspect]
     Indication: BLOOD CHOLESTEROL INCREASED
     Dosage: 5 MG QD PO
     Route: 048
     Dates: start: 20060801
  2. DIOVAN HCT [Concomitant]
  3. LEVOXYL [Concomitant]
  4. PRED FORTE [Concomitant]
  5. TIMOLOL MALEATE [Concomitant]

REACTIONS (2)
  - HEADACHE [None]
  - TACHYCARDIA [None]
